FAERS Safety Report 8395741-8 (Version None)
Quarter: 2012Q2

REPORT INFORMATION
  Report Type: 
  Country: None (occurrence: None)
  Receive Date: 20120530
  Receipt Date: 20120521
  Transmission Date: 20120825
  Serious: Yes (Disabling, Other)
  Sender: FDA-Public Use
  Company Number: FR-JNJFOC-20120212890

PATIENT
  Sex: Male
  Weight: 45 kg

DRUGS (16)
  1. OSFOLATE [Concomitant]
     Dosage: ON THE MORNING
     Route: 048
  2. UNSPECIFIED COPD MEDICATIONS [Concomitant]
     Indication: CHRONIC OBSTRUCTIVE PULMONARY DISEASE
     Route: 055
  3. ZIAGEN [Concomitant]
     Indication: HIV INFECTION
     Route: 048
     Dates: start: 20070206
  4. MS CONTIN [Concomitant]
     Indication: PAIN
     Dosage: AT LEAST 600MG PER DAY
     Route: 065
  5. ISENTRESS [Concomitant]
     Indication: HIV INFECTION
     Route: 048
     Dates: start: 20090311
  6. VITAMIN D [Concomitant]
     Route: 048
  7. KETOCONAZOLE [Concomitant]
     Route: 065
  8. ELUDRIL [Concomitant]
     Route: 048
  9. SYMBICORT [Concomitant]
     Route: 065
  10. PHYSIOTENS [Concomitant]
     Dosage: ON THE MORNING
     Route: 048
  11. OROCAL D3 [Concomitant]
     Route: 048
  12. TOCO [Concomitant]
     Dosage: ON THE MORNING
     Route: 065
  13. INTELENCE [Suspect]
     Indication: HIV INFECTION
     Route: 048
     Dates: start: 20120120
  14. LOCAPRED [Concomitant]
     Route: 061
  15. VALACYCLOVIR HYDROCHLORIDE [Concomitant]
     Indication: ANTIVIRAL PROPHYLAXIS
     Route: 048
  16. BACTRIM [Concomitant]
     Dosage: DURING MEAL
     Route: 048

REACTIONS (4)
  - PAIN IN EXTREMITY [None]
  - GAIT DISTURBANCE [None]
  - OEDEMA PERIPHERAL [None]
  - OFF LABEL USE [None]
